FAERS Safety Report 12449504 (Version 2)
Quarter: 2016Q2

REPORT INFORMATION
  Report Type: Report from Study
  Country: GB (occurrence: GB)
  Receive Date: 20160608
  Receipt Date: 20160616
  Transmission Date: 20160815
  Serious: Yes (Hospitalization)
  Sender: FDA-Public Use
  Company Number: GB-BEH-2016070113

PATIENT
  Age: 62 Year
  Sex: Female
  Weight: 52 kg

DRUGS (8)
  1. NIFEDIPINE. [Concomitant]
     Active Substance: NIFEDIPINE
     Indication: SYSTEMIC SCLEROSIS
     Dosage: 5 MG, TID
     Route: 065
  2. CETIRIZINE [Concomitant]
     Active Substance: CETIRIZINE HYDROCHLORIDE
     Dosage: 100 MG, OD
     Route: 065
  3. FIBROGAMMIN P [Suspect]
     Active Substance: FACTOR XIII CONCENTRATE (HUMAN)
     Indication: SYSTEMIC SCLEROSIS
     Dosage: 1500 IU, TOT
     Route: 042
     Dates: start: 20160321, end: 20160321
  4. CALCIUM + VITAMIN D                /01483701/ [Concomitant]
     Active Substance: CALCIUM\VITAMIN D
     Dosage: UNK, OD
     Route: 048
  5. COD LIVER OIL [Concomitant]
     Active Substance: COD LIVER OIL
  6. OENOTHERA BIENNIS OIL [Concomitant]
     Dosage: UNK, OD
     Route: 065
  7. LANSOPRAZOLE. [Concomitant]
     Active Substance: LANSOPRAZOLE
     Dosage: 30 MG, BID
     Route: 065
  8. LOSARTAN. [Concomitant]
     Active Substance: LOSARTAN
     Indication: SYSTEMIC SCLEROSIS
     Dosage: 25 MG, OD
     Route: 065

REACTIONS (2)
  - Asthenia [Recovered/Resolved]
  - Ischaemic stroke [Recovered/Resolved]

NARRATIVE: CASE EVENT DATE: 20160511
